FAERS Safety Report 5520986-1 (Version None)
Quarter: 2007Q4

REPORT INFORMATION
  Report Type: 
  Country: None (occurrence: None)
  Receive Date: 20071119
  Receipt Date: 20071108
  Transmission Date: 20080405
  Serious: Yes (Hospitalization, Disabling)
  Sender: FDA-Public Use
  Company Number: CZ-ROCHE-530726

PATIENT
  Age: 63 Year
  Sex: Female

DRUGS (5)
  1. XELODA [Suspect]
     Indication: COLON CANCER
     Dosage: 1500 MG IN MORNING AND 1500 MG IN EVENING
     Route: 048
     Dates: start: 20070618, end: 20070911
  2. LETROX [Concomitant]
     Dosage: DRUG NAME LETROX 75, DOSAGE FREQUENCY 1-0-0
  3. DEGAN [Concomitant]
     Dosage: DOSE FREQUENCY 1-1-1
  4. NUTRISON [Concomitant]
  5. AMBROBENE [Concomitant]
     Dosage: DOSE FREQUENCY 1-1-1

REACTIONS (1)
  - NECROTISING OESOPHAGITIS [None]
